FAERS Safety Report 11985685 (Version 8)
Quarter: 2019Q1

REPORT INFORMATION
  Report Type: Spontaneous
  Country: CA (occurrence: CA)
  Receive Date: 20160201
  Receipt Date: 20190208
  Transmission Date: 20190417
  Serious: Yes (Hospitalization, Other)
  Sender: FDA-Public Use
  Company Number: CA-ROCHE-1703665

PATIENT
  Sex: Female

DRUGS (2)
  1. XOLAIR [Suspect]
     Active Substance: OMALIZUMAB
     Route: 058
     Dates: start: 20170313, end: 20170313
  2. XOLAIR [Suspect]
     Active Substance: OMALIZUMAB
     Indication: ASTHMA
     Route: 058
     Dates: start: 20080305

REACTIONS (19)
  - Asthma [Unknown]
  - Head discomfort [Unknown]
  - Condition aggravated [Unknown]
  - Bronchospasm [Unknown]
  - Respiratory tract infection [Unknown]
  - Arthralgia [Unknown]
  - Contusion [Unknown]
  - Osteoporosis [Unknown]
  - Arteriospasm coronary [Unknown]
  - Gait inability [Unknown]
  - Skin disorder [Unknown]
  - Bronchitis [Unknown]
  - Malaise [Unknown]
  - Memory impairment [Unknown]
  - Immunodeficiency [Unknown]
  - Pneumonia [Unknown]
  - Pain [Unknown]
  - Emphysema [Unknown]
  - Dyspnoea [Not Recovered/Not Resolved]

NARRATIVE: CASE EVENT DATE: 2012
